FAERS Safety Report 6665285-X (Version None)
Quarter: 2010Q1

REPORT INFORMATION
  Report Type: 
  Country: None (occurrence: None)
  Receive Date: 20100323
  Receipt Date: 20100107
  Transmission Date: 20100710
  Serious: No
  Sender: FDA-Public Use
  Company Number: 100107-0000013

PATIENT
  Age: 12 Month
  Sex: Female

DRUGS (1)
  1. SABRIL [Suspect]
     Indication: INFANTILE SPASMS
     Dosage: ;BID;

REACTIONS (3)
  - INSOMNIA [None]
  - LACRIMATION INCREASED [None]
  - PSYCHOMOTOR HYPERACTIVITY [None]
